FAERS Safety Report 11875389 (Version 3)
Quarter: 2016Q1

REPORT INFORMATION
  Report Type: Spontaneous
  Country: US (occurrence: US)
  Receive Date: 20151229
  Receipt Date: 20160217
  Transmission Date: 20160526
  Serious: No
  Sender: FDA-Public Use
  Company Number: US-PFIZER INC-2015459849

PATIENT
  Age: 78 Year
  Sex: Male
  Weight: 90.72 kg

DRUGS (19)
  1. LIPITOR [Suspect]
     Active Substance: ATORVASTATIN CALCIUM
     Dosage: 40 MG, UNK
  2. LOPRESSOR [Suspect]
     Active Substance: METOPROLOL TARTRATE
     Indication: STENT PLACEMENT
     Dosage: 25 MG, 2X/DAY
     Dates: start: 201507
  3. PLAVIX [Concomitant]
     Active Substance: CLOPIDOGREL BISULFATE
     Dosage: 75 MG, DAILY
     Route: 048
  4. NITROGLYCERIN. [Concomitant]
     Active Substance: NITROGLYCERIN
     Dosage: 0.4 MG, DAILY
     Route: 060
  5. VITAMIN E /00110502/ [Concomitant]
     Dosage: (400 UNITS), DAILY
  6. ASPIRIN. [Concomitant]
     Active Substance: ASPIRIN
     Dosage: 81 MG, DAILY
     Route: 048
  7. FISH OIL [Concomitant]
     Active Substance: FISH OIL
     Dosage: 1000 MG, 2X/DAY
     Route: 048
  8. VITAMIN C [Concomitant]
     Active Substance: ASCORBIC ACID
     Dosage: 500 MG, UNK
  9. ATORVASTATIN CALCIUM. [Suspect]
     Active Substance: ATORVASTATIN CALCIUM
     Indication: STENT PLACEMENT
     Dosage: 80 MG, 1X/DAY
     Route: 048
     Dates: start: 20150706
  10. LOPRESSOR [Suspect]
     Active Substance: METOPROLOL TARTRATE
     Dosage: 12.5 MG, 1X/DAY
     Dates: start: 201511, end: 20151119
  11. AMITRIPTYLINE [Concomitant]
     Active Substance: AMITRIPTYLINE
     Dosage: 10 MG, DAILY (EVERY BEDTIME)
     Route: 048
  12. LIPITOR [Suspect]
     Active Substance: ATORVASTATIN CALCIUM
     Dosage: 80 MG, UNK
     Dates: start: 20150707
  13. METOPROLOL TARTRATE. [Concomitant]
     Active Substance: METOPROLOL TARTRATE
     Dosage: 12.5 MG, DAILY
  14. OSTEO BI-FLEX /01431201/ [Concomitant]
     Dosage: 1 DF, 2X/DAY
  15. CLOPIDOGREL [Concomitant]
     Active Substance: CLOPIDOGREL BISULFATE
     Indication: STENT PLACEMENT
     Dosage: 75 MG, 1X/DAY
     Dates: start: 201507
  16. LOSARTAN HCT 50 [Concomitant]
     Indication: STENT PLACEMENT
     Dosage: 12.5 MG, UNK
     Dates: start: 201507
  17. LOSARTAN HCT 50 [Concomitant]
     Dosage: (LOSARTAN-50MG, HYDROCHLOROTHIAZIDE-12.5MG), DAILY
     Route: 048
  18. VITAMIN D3 [Concomitant]
     Active Substance: CHOLECALCIFEROL
     Dosage: (1000 UNITS), DAILY
  19. ASPIRIN BUFFERED [Concomitant]
     Active Substance: ASPIRIN
     Dosage: 325 MG, DAILY
     Route: 048

REACTIONS (2)
  - Memory impairment [Not Recovered/Not Resolved]
  - Nasopharyngitis [Not Recovered/Not Resolved]

NARRATIVE: CASE EVENT DATE: 201507
